FAERS Safety Report 5221070-7 (Version None)
Quarter: 2007Q1

REPORT INFORMATION
  Report Type: 
  Country: None (occurrence: None)
  Receive Date: 20070124
  Receipt Date: 20070110
  Transmission Date: 20070707
  Serious: Yes (Hospitalization)
  Sender: FDA-Public Use
  Company Number: 234306

PATIENT
  Age: 40 Year
  Sex: Male
  Weight: 95.2 kg

DRUGS (2)
  1. BEVACIZUMAB(BEVACIZUMAB) PWDR + SOLVENT,INFUSION SOLN, 100MG [Suspect]
     Indication: GLIOBLASTOMA MULTIFORME
     Dosage: 991 MG, Q2W, INTRAVENOUS
     Route: 042
     Dates: start: 20060731
  2. IRINOTECAN HCL [Suspect]
     Indication: GLIOBLASTOMA MULTIFORME
     Dosage: 280 MG, Q2W, INTRAVENOUS
     Route: 042
     Dates: start: 20061023

REACTIONS (4)
  - BRAIN OEDEMA [None]
  - HYDROCEPHALUS [None]
  - INTRAVENTRICULAR HAEMORRHAGE [None]
  - PNEUMOCEPHALUS [None]
